FAERS Safety Report 19153044 (Version 1)
Quarter: 2021Q2

REPORT INFORMATION
  Report Type: Spontaneous
  Country: CA (occurrence: CA)
  Receive Date: 20210419
  Receipt Date: 20210419
  Transmission Date: 20210717
  Serious: Yes (Hospitalization)
  Sender: FDA-Public Use
  Company Number: CA-ALLERGAN-2115341US

PATIENT
  Sex: Female
  Weight: 77 kg

DRUGS (13)
  1. SALOFALK [MESALAZINE] [Suspect]
     Active Substance: MESALAMINE
     Indication: COLITIS
     Dosage: 1500 MG, BID
     Route: 048
  2. LOPRESOR [Concomitant]
     Active Substance: METOPROLOL
  3. ASA [Concomitant]
     Active Substance: ASPIRIN
     Route: 065
  4. CALCIUM CARBONATE. [Concomitant]
     Active Substance: CALCIUM CARBONATE
  5. PANTOPRAZOLE [Concomitant]
     Active Substance: PANTOPRAZOLE
  6. DULOXETINE SANDOZ [Concomitant]
     Active Substance: DULOXETINE
  7. LISINOPRIL. [Concomitant]
     Active Substance: LISINOPRIL
  8. VITAMIN D [Concomitant]
     Active Substance: VITAMIN D NOS
  9. ROSUVASTATIN. [Concomitant]
     Active Substance: ROSUVASTATIN
     Route: 065
  10. BUPROPION XL [Concomitant]
     Active Substance: BUPROPION
     Route: 065
  11. CLONAZEPAM. [Concomitant]
     Active Substance: CLONAZEPAM
  12. PREGABALIN. [Concomitant]
     Active Substance: PREGABALIN
  13. SYNTHROID [Concomitant]
     Active Substance: LEVOTHYROXINE SODIUM

REACTIONS (9)
  - Gastrointestinal motility disorder [Recovered/Resolved]
  - Incontinence [Recovered/Resolved]
  - Diarrhoea [Recovered/Resolved]
  - Drug hypersensitivity [Recovered/Resolved]
  - Hypovolaemic shock [Recovered/Resolved]
  - Hypotension [Recovered/Resolved]
  - Abdominal pain [Recovered/Resolved]
  - Pyrexia [Recovered/Resolved]
  - Vomiting [Recovered/Resolved]
